FAERS Safety Report 5245409-1 (Version None)
Quarter: 2007Q1

REPORT INFORMATION
  Report Type: 
  Country: None (occurrence: None)
  Receive Date: 20070223
  Receipt Date: 20070214
  Transmission Date: 20070707
  Serious: Yes (Other)
  Sender: FDA-Public Use
  Company Number: US-ROCHE-482634

PATIENT
  Age: 50 Year
  Sex: Female
  Weight: 59 kg

DRUGS (20)
  1. CELLCEPT [Suspect]
     Route: 065
     Dates: start: 19991221
  2. PROCRIT [Suspect]
     Indication: NEPHROGENIC ANAEMIA
     Route: 058
     Dates: start: 20060621, end: 20061101
  3. PROCRIT [Suspect]
     Route: 058
     Dates: start: 20061102, end: 20061112
  4. PROCRIT [Suspect]
     Route: 058
     Dates: start: 20061114, end: 20061209
  5. PROCRIT [Suspect]
     Route: 058
     Dates: start: 20061209
  6. PROCRIT [Suspect]
     Route: 058
     Dates: start: 20020515
  7. PROCRIT [Suspect]
     Route: 058
  8. PROGRAF [Suspect]
     Route: 065
     Dates: start: 19991221
  9. DILTIAZEM CD [Concomitant]
     Indication: HYPERTENSION
     Route: 048
  10. ATENOLOL [Concomitant]
     Indication: HYPERTENSION
     Route: 048
  11. LASIX [Concomitant]
     Indication: HYPERTENSION
     Route: 048
  12. LISINOPRIL [Concomitant]
     Indication: HYPERTENSION
     Route: 048
  13. PREDNISONE TAB [Concomitant]
     Indication: KIDNEY TRANSPLANT REJECTION
     Route: 048
  14. MIACALCIN [Concomitant]
     Indication: OSTEOPOROSIS
     Route: 045
  15. MVI WITH MINERALS [Concomitant]
     Route: 048
  16. CLONIDINE [Concomitant]
     Indication: HYPERTENSION
     Route: 048
  17. PEPCID [Concomitant]
     Route: 048
  18. PRAVACHOL [Concomitant]
     Route: 048
  19. NAHCO3 [Concomitant]
     Route: 048
  20. ESTROGEN/PROGESTERONE [Concomitant]
     Route: 061

REACTIONS (3)
  - HYPERPARATHYROIDISM [None]
  - THERAPEUTIC RESPONSE DECREASED [None]
  - UNEVALUABLE EVENT [None]
